FAERS Safety Report 8237123-5 (Version None)
Quarter: 2012Q1

REPORT INFORMATION
  Report Type: 
  Country: None (occurrence: None)
  Receive Date: 20120327
  Receipt Date: 20120315
  Transmission Date: 20120608
  Serious: Yes (Other)
  Sender: FDA-Public Use
  Company Number: BR-BAYER-2012-026710

PATIENT
  Age: 42 Year
  Sex: Female
  Weight: 98 kg

DRUGS (7)
  1. ESTRADIOL VALERATE/DIENOGEST [Suspect]
     Indication: VAGINAL HAEMORRHAGE
     Dosage: 1 DF, QD
     Route: 048
     Dates: start: 20120201
  2. ESTRADIOL VALERATE/DIENOGEST [Suspect]
     Indication: OVARIAN CYST
  3. SERTRALINE HYDROCHLORIDE [Concomitant]
     Indication: DEPRESSION
     Dosage: 1 DF, QD
     Route: 048
  4. YAZ [Suspect]
     Route: 048
  5. YAZ [Suspect]
     Route: 048
  6. LOVAZA [Concomitant]
     Indication: CONSTIPATION
     Dosage: 1 DF, BID
     Route: 048
     Dates: start: 20110901
  7. LOVAZA [Concomitant]
     Indication: BLOOD TRIGLYCERIDES ABNORMAL

REACTIONS (13)
  - INSOMNIA [None]
  - OVARIAN CYST [None]
  - SEBORRHOEA [None]
  - HEADACHE [None]
  - DEPRESSION [None]
  - CONSTIPATION [None]
  - DANDRUFF [None]
  - URINE OUTPUT INCREASED [None]
  - ABDOMINAL DISTENSION [None]
  - WEIGHT INCREASED [None]
  - OEDEMA PERIPHERAL [None]
  - DECREASED APPETITE [None]
  - OFF LABEL USE [None]
